FAERS Safety Report 12337942 (Version 2)
Quarter: 2016Q2

REPORT INFORMATION
  Report Type: Spontaneous
  Country: SE (occurrence: SE)
  Receive Date: 20160505
  Receipt Date: 20160527
  Transmission Date: 20160815
  Serious: Yes (Hospitalization)
  Sender: FDA-Public Use
  Company Number: SE-ASTRAZENECA-2016SE47952

PATIENT
  Age: 38 Year
  Sex: Male

DRUGS (17)
  1. METHADONE [Suspect]
     Active Substance: METHADONE HYDROCHLORIDE
     Dosage: 1 MG/ML
     Route: 065
  2. LYRICA [Concomitant]
     Active Substance: PREGABALIN
     Dosage: 2+2+2
  3. KALCIPOS-D-FORTE [Concomitant]
  4. CYMBALTA [Concomitant]
     Active Substance: DULOXETINE HYDROCHLORIDE
     Dosage: 1+2
  5. MOVENTIG [Suspect]
     Active Substance: NALOXEGOL OXALATE
     Indication: CONSTIPATION
     Route: 048
     Dates: start: 20160226
  6. NALOXON HYDROCHLORIDE [Concomitant]
     Dosage: 1 MG/ML, 5 ML AS REQUIRED
     Route: 048
     Dates: start: 20160223
  7. LAXOBERAL [Concomitant]
     Active Substance: SODIUM PICOSULFATE
     Dosage: 75 MG/ML, 15 DROPS, AS REQUIRED
     Route: 048
  8. MOXALOLE [Concomitant]
     Dosage: AS REQUIRED
     Route: 048
  9. PURESENID EX-LAX [Concomitant]
     Dosage: AS REQUIRED
     Route: 048
  10. METHADONE [Suspect]
     Active Substance: METHADONE HYDROCHLORIDE
     Dosage: 1+1+1
     Route: 065
  11. NEXIUM [Concomitant]
     Active Substance: ESOMEPRAZOLE MAGNESIUM
  12. FRAGMIN [Concomitant]
     Active Substance: DALTEPARIN SODIUM
     Route: 058
  13. FORSTEO [Concomitant]
     Active Substance: TERIPARATIDE
     Dosage: 20 MCG/80 MCG 1 DF DAILY
     Route: 058
  14. DULCOLAX NOS [Concomitant]
     Active Substance: BISACODYL OR DOCUSATE SODIUM
     Dosage: AS REQUIRED
     Route: 048
  15. ALVEDON [Concomitant]
     Active Substance: ACETAMINOPHEN
     Dosage: 1 DF THREE TIMES A DAY
  16. STESOLID [Concomitant]
     Active Substance: DIAZEPAM
     Dosage: AS REQUIRED
  17. METHADONE [Suspect]
     Active Substance: METHADONE HYDROCHLORIDE
     Route: 065

REACTIONS (3)
  - Drug ineffective [Unknown]
  - Pain [Unknown]
  - Abdominal pain [Unknown]
